FAERS Safety Report 13464564 (Version 1)
Quarter: 2017Q2

REPORT INFORMATION
  Report Type: Spontaneous
  Country: US (occurrence: US)
  Receive Date: 20170420
  Receipt Date: 20170420
  Transmission Date: 20170830
  Serious: Yes (Other)
  Sender: FDA-Public Use
  Company Number: US-ROCHE-722773

PATIENT
  Age: 33 Year
  Sex: Female
  Weight: 61.2 kg

DRUGS (3)
  1. ACCUTANE [Suspect]
     Active Substance: ISOTRETINOIN
     Indication: ACNE CYSTIC
     Route: 048
     Dates: start: 199909, end: 19991230
  2. ACCUTANE [Suspect]
     Active Substance: ISOTRETINOIN
     Route: 048
     Dates: start: 20000131, end: 200005
  3. ORTHO TRI CYCLEN [Concomitant]
     Active Substance: ETHINYL ESTRADIOL\NORGESTIMATE
     Indication: CONTRACEPTION
     Route: 065

REACTIONS (6)
  - Gastrointestinal injury [Unknown]
  - Stomatitis [Unknown]
  - Seborrhoea [Unknown]
  - Proctitis ulcerative [Unknown]
  - Epistaxis [Unknown]
  - Dry skin [Unknown]

NARRATIVE: CASE EVENT DATE: 19991109
